FAERS Safety Report 7360939-4 (Version None)
Quarter: 2011Q1

REPORT INFORMATION
  Report Type: 
  Country: None (occurrence: None)
  Receive Date: 20110318
  Receipt Date: 20110314
  Transmission Date: 20110831
  Serious: Yes (Other)
  Sender: FDA-Public Use
  Company Number: US-ELI_LILLY_AND_COMPANY-US201101000794

PATIENT
  Age: 24 Year
  Sex: Male
  Weight: 68.027 kg

DRUGS (2)
  1. HEPARIN SODIUM [Concomitant]
     Dates: start: 20101228, end: 20101229
  2. XIGRIS [Suspect]
     Indication: SEPSIS
     Dosage: UNK, UNK
     Dates: start: 20101228, end: 20101229

REACTIONS (1)
  - SEPSIS [None]
